FAERS Safety Report 9448012 (Version 1)
Quarter: 2013Q3

REPORT INFORMATION
  Report Type: Spontaneous
  Country: US (occurrence: None)
  Receive Date: 20130807
  Receipt Date: 20130807
  Transmission Date: 20140515
  Serious: Yes (Hospitalization)
  Sender: FDA-Public Use
  Company Number: None

PATIENT
  Age: 65 Year
  Sex: Male
  Weight: 84.37 kg

DRUGS (1)
  1. SUBOXONE [Suspect]
     Indication: PAIN
     Dosage: 1/4-1/2 FILM TWICE DAILY TAKEN UNDER THE TONGUE
     Route: 060

REACTIONS (4)
  - Headache [None]
  - Constipation [None]
  - Dizziness [None]
  - Nausea [None]
